FAERS Safety Report 25581298 (Version 3)
Quarter: 2025Q4

REPORT INFORMATION
  Report Type: Report from Study
  Country: US (occurrence: US)
  Receive Date: 20250718
  Receipt Date: 20251018
  Transmission Date: 20260117
  Serious: No
  Sender: UNITED THERAPEUTICS
  Company Number: US-UNITED THERAPEUTICS-UNT-2025-018014

PATIENT
  Sex: Male

DRUGS (4)
  1. TREPROSTINIL SODIUM [Suspect]
     Active Substance: TREPROSTINIL SODIUM
     Indication: Pulmonary arterial hypertension
     Dosage: 30 ?G, QID
     Dates: start: 202505, end: 2025
  2. TREPROSTINIL SODIUM [Suspect]
     Active Substance: TREPROSTINIL SODIUM
     Indication: Chronic obstructive pulmonary disease
     Dosage: 54-72 ?G (9-12 BREATHS), QID
     Dates: start: 2025, end: 2025
  3. TREPROSTINIL SODIUM [Suspect]
     Active Substance: TREPROSTINIL SODIUM
     Indication: Emphysema
     Dosage: 42 ?G, QID
     Dates: start: 2025, end: 202508
  4. TREPROSTINIL SODIUM [Suspect]
     Active Substance: TREPROSTINIL SODIUM
     Dosage: UNK

REACTIONS (14)
  - Cough [Recovering/Resolving]
  - Dyspnoea [Recovering/Resolving]
  - Ageusia [Unknown]
  - Pain in jaw [Recovering/Resolving]
  - Toothache [Recovering/Resolving]
  - Headache [Recovering/Resolving]
  - Feeling abnormal [Recovered/Resolved]
  - Decreased activity [Unknown]
  - Chronic obstructive pulmonary disease [Unknown]
  - Emphysema [Unknown]
  - Wrong technique in product usage process [Recovered/Resolved]
  - Extra dose administered [Recovered/Resolved]
  - Therapy partial responder [Unknown]
  - Off label use [Recovered/Resolved]

NARRATIVE: CASE EVENT DATE: 20250101
